FAERS Safety Report 8605740-6 (Version None)
Quarter: 2012Q3

REPORT INFORMATION
  Report Type: 
  Country: None (occurrence: None)
  Receive Date: 20120820
  Receipt Date: 20120810
  Transmission Date: 20120928
  Serious: Yes (Other)
  Sender: FDA-Public Use
  Company Number: US-ASTRAZENECA-2011SE57958

PATIENT
  Age: 61 Year
  Sex: Female

DRUGS (1)
  1. CRESTOR [Suspect]
     Route: 048

REACTIONS (9)
  - BLOOD PRESSURE INCREASED [None]
  - FALL [None]
  - VISION BLURRED [None]
  - UPPER LIMB FRACTURE [None]
  - NERVE COMPRESSION [None]
  - HEADACHE [None]
  - VISUAL IMPAIRMENT [None]
  - ARTHRITIS [None]
  - CORNEAL DISORDER [None]
